FAERS Safety Report 5218047-4 (Version None)
Quarter: 2007Q1

REPORT INFORMATION
  Report Type: 
  Country: None (occurrence: None)
  Receive Date: 20061130
  Receipt Date: 20060918
  Transmission Date: 20070707
  Serious: Yes (Other)
  Sender: FDA-Public Use
  Company Number: US200609000940

PATIENT
  Age: 34 Year
  Sex: Male
  Weight: 90.7 kg

DRUGS (4)
  1. ZYPREXA [Suspect]
     Dates: start: 19970101, end: 20030101
  2. ARIPIPRAZOLE [Concomitant]
  3. CARBAMAZEPINE [Concomitant]
  4. EFFEXOR [Concomitant]

REACTIONS (3)
  - DIABETES MELLITUS [None]
  - METABOLIC DISORDER [None]
  - PANCREATITIS [None]
